FAERS Safety Report 25859274 (Version 1)
Quarter: 2025Q3

REPORT INFORMATION
  Report Type: Spontaneous
  Country: US (occurrence: US)
  Receive Date: 20250929
  Receipt Date: 20250929
  Transmission Date: 20251021
  Serious: No
  Sender: VERTEX
  Company Number: US-VERTEX PHARMACEUTICALS-2025-015702

PATIENT
  Sex: Female

DRUGS (1)
  1. SUZETRIGINE [Suspect]
     Active Substance: SUZETRIGINE
     Indication: Pain
     Dosage: DOSE UNKNOWN, BID (Q12)
     Route: 048

REACTIONS (1)
  - Nausea [Recovered/Resolved]
